FAERS Safety Report 4664993-X (Version None)
Quarter: 2005Q2

REPORT INFORMATION
  Report Type: 
  Country: None (occurrence: None)
  Receive Date: 20050517
  Receipt Date: 20050517
  Transmission Date: 20051028
  Serious: Yes (Other)
  Sender: FDA-Public Use
  Company Number: None

PATIENT
  Age: 70 Year
  Sex: Female
  Weight: 58.0604 kg

DRUGS (7)
  1. MACUGEN [Suspect]
     Indication: MACULAR DEGENERATION
     Dosage: Q6WKS
     Dates: start: 20050215, end: 20050515
  2. LIPITOR [Concomitant]
  3. XANAX [Concomitant]
  4. HCT [Concomitant]
  5. ... [Concomitant]
  6. CLONIDINE [Concomitant]
  7. RANITIDINE [Concomitant]

REACTIONS (2)
  - BLOOD PRESSURE INCREASED [None]
  - PHARMACEUTICAL PRODUCT COMPLAINT [None]
